FAERS Safety Report 12313178 (Version 4)
Quarter: 2020Q3

REPORT INFORMATION
  Report Type: Spontaneous
  Country: NL (occurrence: NL)
  Receive Date: 20160428
  Receipt Date: 20200714
  Transmission Date: 20201102
  Serious: Yes (Hospitalization, Other)
  Sender: FDA-Public Use
  Company Number: NL-AUROBINDO-AUR-APL-2016-05462

PATIENT
  Age: 45 Year
  Sex: Female

DRUGS (23)
  1. OMEPRAZOLE. [Concomitant]
     Active Substance: OMEPRAZOLE
  2. IRBESARTAN. [Concomitant]
     Active Substance: IRBESARTAN
     Dosage: 150 MILLIGRAM
  3. XYLOMETAZOLINE [Concomitant]
     Active Substance: XYLOMETAZOLINE
     Indication: PRODUCT USED FOR UNKNOWN INDICATION
     Dosage: UNK, 1 MG/ML ON DAILY BASIS
     Route: 065
  4. XYLOMETAZOLINE [Concomitant]
     Active Substance: XYLOMETAZOLINE
     Dosage: 1 MG/ML ON DAILY BASIS
  5. BISACODYL. [Concomitant]
     Active Substance: BISACODYL
     Indication: WEIGHT DECREASED
     Dosage: UNK, OVERUSED
     Route: 065
  6. VENLAFAXINE [Concomitant]
     Active Substance: VENLAFAXINE HYDROCHLORIDE
     Indication: PRODUCT USED FOR UNKNOWN INDICATION
     Dosage: 150 MG, ONCE A DAY
     Route: 065
  7. IRBESARTAN. [Concomitant]
     Active Substance: IRBESARTAN
     Indication: PRODUCT USED FOR UNKNOWN INDICATION
     Dosage: 150 MG, ONCE A DAY
     Route: 065
  8. TRAMADOL. [Suspect]
     Active Substance: TRAMADOL
     Indication: PRODUCT USED FOR UNKNOWN INDICATION
     Dosage: 50 MILLIGRAM
     Route: 065
  9. PROMETHAZINE [Suspect]
     Active Substance: PROMETHAZINE HYDROCHLORIDE
     Indication: PRODUCT USED FOR UNKNOWN INDICATION
     Dosage: UNK
     Route: 065
  10. BISACODYL. [Concomitant]
     Active Substance: BISACODYL
     Dosage: OVERUSED
  11. OMEPRAZOLE. [Concomitant]
     Active Substance: OMEPRAZOLE
     Indication: PRODUCT USED FOR UNKNOWN INDICATION
     Dosage: 20 MG, ONCE A DAY
     Route: 065
  12. OMEPRAZOLE. [Concomitant]
     Active Substance: OMEPRAZOLE
     Dosage: 20 MILLIGRAM
  13. IRBESARTAN. [Concomitant]
     Active Substance: IRBESARTAN
     Dosage: 150 MILLIGRAM
  14. VENLAFAXINE [Concomitant]
     Active Substance: VENLAFAXINE HYDROCHLORIDE
     Dosage: 150 MILLIGRAM
  15. OMEPRAZOLE. [Concomitant]
     Active Substance: OMEPRAZOLE
  16. BISACODYL. [Concomitant]
     Active Substance: BISACODYL
     Dosage: OVERUSED
  17. XYLOMETAZOLINE [Concomitant]
     Active Substance: XYLOMETAZOLINE
     Dosage: 1 MG/ML ON DAILY BASIS
  18. BISACODYL. [Concomitant]
     Active Substance: BISACODYL
     Dosage: OVERUSED
  19. XYLOMETAZOLINE [Concomitant]
     Active Substance: XYLOMETAZOLINE
     Dosage: 1 MG/ML ON DAILY BASIS
  20. IRBESARTAN. [Concomitant]
     Active Substance: IRBESARTAN
     Dosage: 150 MILLIGRAM
  21. CAFFEINE CITRATE;PARACETAMOL [Concomitant]
     Indication: PRODUCT USED FOR UNKNOWN INDICATION
     Dosage: UNK, PARACETAMOL 500MG, CAFFEINE 50MG ? TABLET APPROXIMATELY TEN TABLETS
     Route: 065
  22. VENLAFAXINE [Concomitant]
     Active Substance: VENLAFAXINE HYDROCHLORIDE
     Dosage: 150 MILLIGRAM
  23. VENLAFAXINE [Concomitant]
     Active Substance: VENLAFAXINE HYDROCHLORIDE
     Dosage: 150 MILLIGRAM

REACTIONS (5)
  - Poisoning [Recovered/Resolved]
  - Prescription drug used without a prescription [Unknown]
  - Anticholinergic syndrome [Recovered/Resolved]
  - Toxicity to various agents [Recovered/Resolved]
  - Suicide attempt [Recovered/Resolved]

NARRATIVE: CASE EVENT DATE: 20141031
